FAERS Safety Report 8151774 (Version 4)
Quarter: 2012Q4

REPORT INFORMATION
  Report Type: 
  Country: US (occurrence: US)
  Receive Date: 20110922
  Receipt Date: 20121112
  Transmission Date: 20130627
  Serious: Yes (Hospitalization, Other)
  Sender: FDA-Public Use
  Company Number: US-ASTRAZENECA-2011SE00189

PATIENT
  Age: 51 Year
  Sex: Female

DRUGS (1)
  1. SEROQUEL [Suspect]
     Route: 048

REACTIONS (6)
  - Ankle fracture [Unknown]
  - Hip fracture [Unknown]
  - Pneumonia [Unknown]
  - Drug dose omission [Unknown]
  - Convulsion [Unknown]
  - Malaise [Unknown]
